FAERS Safety Report 12968726 (Version 3)
Quarter: 2017Q3

REPORT INFORMATION
  Report Type: Report from Study
  Country: TR (occurrence: TR)
  Receive Date: 20161123
  Receipt Date: 20170830
  Transmission Date: 20171127
  Serious: Yes (Death, Hospitalization, Other)
  Sender: FDA-Public Use
  Company Number: TR-PFIZER INC-2016529999

PATIENT
  Age: 54 Year
  Sex: Female
  Weight: 47 kg

DRUGS (1)
  1. PALBOCICLIB [Suspect]
     Active Substance: PALBOCICLIB
     Indication: DEDIFFERENTIATED LIPOSARCOMA
     Dosage: 125 MG, 1X/DAY
     Route: 048
     Dates: start: 20160928, end: 20161025

REACTIONS (7)
  - Platelet count decreased [Recovered/Resolved]
  - White blood cell count increased [Unknown]
  - Pancytopenia [Unknown]
  - Sepsis [Fatal]
  - Gastrointestinal obstruction [Fatal]
  - Haemoglobin decreased [Unknown]
  - White blood cell count decreased [Recovered/Resolved]

NARRATIVE: CASE EVENT DATE: 20161025
